FAERS Safety Report 8176956-0 (Version None)
Quarter: 2012Q1

REPORT INFORMATION
  Report Type: 
  Country: None (occurrence: None)
  Receive Date: 20120301
  Receipt Date: 20120224
  Transmission Date: 20120608
  Serious: Yes (Other)
  Sender: FDA-Public Use
  Company Number: US-PFIZER INC-2011046960

PATIENT
  Sex: Male

DRUGS (5)
  1. PREVACID [Suspect]
  2. ACIPHEX [Suspect]
  3. NEXIUM [Suspect]
  4. PANTOPRAZOLE [Suspect]
     Dosage: 40 MG, UNK
  5. PROTONIX [Suspect]
     Indication: GASTROOESOPHAGEAL REFLUX DISEASE
     Dosage: 20 MG, 2X/DAY

REACTIONS (6)
  - WEIGHT DECREASED [None]
  - DIARRHOEA [None]
  - MALAISE [None]
  - FATIGUE [None]
  - FLATULENCE [None]
  - DRUG INEFFECTIVE [None]
